FAERS Safety Report 5893680-5 (Version None)
Quarter: 2008Q3

REPORT INFORMATION
  Report Type: 
  Country: None (occurrence: None)
  Receive Date: 20080923
  Receipt Date: 20071011
  Transmission Date: 20090109
  Serious: No
  Sender: FDA-Public Use
  Company Number: US-ASTRAZENECA-2007UW23654

PATIENT
  Sex: Female

DRUGS (1)
  1. SEROQUEL [Suspect]
     Dosage: FOR ABOUT1.5 YRS NOW
     Route: 048
     Dates: start: 20060101

REACTIONS (1)
  - HEPATIC FUNCTION ABNORMAL [None]
